FAERS Safety Report 22087017 (Version 1)
Quarter: 2023Q1

REPORT INFORMATION
  Report Type: Spontaneous
  Country: US (occurrence: None)
  Receive Date: 20230313
  Receipt Date: 20230313
  Transmission Date: 20230417
  Serious: No
  Sender: FDA-Public Use
  Company Number: 2023A044470

PATIENT
  Sex: Male
  Weight: 168 kg

DRUGS (1)
  1. BYDUREON BCISE [Suspect]
     Active Substance: EXENATIDE
     Indication: Diabetes mellitus
     Route: 058

REACTIONS (6)
  - Memory impairment [Unknown]
  - Body height decreased [Unknown]
  - Spinal disorder [Unknown]
  - Bone disorder [Unknown]
  - Asthenia [Unknown]
  - Product dose omission issue [Unknown]
